FAERS Safety Report 24680200 (Version 2)
Quarter: 2025Q4

REPORT INFORMATION
  Report Type: Spontaneous
  Country: US (occurrence: US)
  Receive Date: 20241129
  Receipt Date: 20251217
  Transmission Date: 20260118
  Serious: Yes (Life-Threatening, Hospitalization, Other)
  Sender: BRACCO
  Company Number: US-BRACCO-2024US01900

PATIENT
  Age: 69 Year
  Sex: Female
  Weight: 149 kg

DRUGS (15)
  1. LUMASON [Suspect]
     Active Substance: SULFUR HEXAFLUORIDE
     Indication: Echocardiogram
     Dosage: 5 ML, SINGLE
     Dates: start: 20240327, end: 20240327
  2. LUMASON [Suspect]
     Active Substance: SULFUR HEXAFLUORIDE
  3. LUMASON [Suspect]
     Active Substance: SULFUR HEXAFLUORIDE
  4. CALCIUM CHLORIDE\POTASSIUM CHLORIDE\SODIUM LACTATE [Concomitant]
     Active Substance: CALCIUM CHLORIDE\POTASSIUM CHLORIDE\SODIUM LACTATE
     Dosage: 100 ML/HR
  5. LIDOCAINE [Concomitant]
     Active Substance: LIDOCAINE
     Dosage: 5 ML
  6. ETOMIDATE [Concomitant]
     Active Substance: ETOMIDATE
     Dosage: 10 MG
  7. FENTANYL [Concomitant]
     Active Substance: FENTANYL
     Dosage: 100 MCG
  8. MIDAZOLAM [Concomitant]
     Active Substance: MIDAZOLAM
     Dosage: 2 MG
  9. PROPOFOL [Concomitant]
     Active Substance: PROPOFOL
     Dosage: 40 MG
  10. SUCCINYLCHOLINE CHLORIDE [Concomitant]
     Active Substance: SUCCINYLCHOLINE CHLORIDE
     Dosage: 160 MG
  11. PHENYLEPHRINE [Concomitant]
     Active Substance: PHENYLEPHRINE
     Dosage: 200 MCG
  12. DEXAMETHASONE [Concomitant]
     Active Substance: DEXAMETHASONE
     Dosage: 8 MG
  13. METOCLOPRAMIDE [Concomitant]
     Active Substance: METOCLOPRAMIDE
     Dosage: 10 MG
  14. ONDANSETRON [Concomitant]
     Active Substance: ONDANSETRON
     Dosage: 4 MG
  15. WARFARIN SODIUM [Concomitant]
     Active Substance: WARFARIN SODIUM

REACTIONS (1)
  - Anaphylactic shock [Recovered/Resolved]

NARRATIVE: CASE EVENT DATE: 20240327
